FAERS Safety Report 4499452-0 (Version None)
Quarter: 2004Q4

REPORT INFORMATION
  Report Type: 
  Country: None (occurrence: None)
  Receive Date: 20040928
  Receipt Date: 20040701
  Transmission Date: 20050328
  Serious: No
  Sender: FDA-Public Use
  Company Number: 04P-163-0265402-00

PATIENT
  Age: 38 Year
  Sex: Male
  Weight: 90.7194 kg

DRUGS (10)
  1. HUMIRA [Suspect]
     Indication: RHEUMATOID ARTHRITIS
     Dosage: 40 MG, 1 IN 2 WK, SUBCUTANEOUS
     Route: 058
     Dates: start: 20040621
  2. PREDNISONE [Concomitant]
  3. METHOTREXATE SODIUM [Concomitant]
  4. BUCINDOLOL HYDROCHLORIDE [Concomitant]
  5. SERTRALINE HYDROCHLORIDE [Concomitant]
  6. MYOCALCIUM [Concomitant]
  7. CLONAZEPAM [Concomitant]
  8. VICODIN [Concomitant]
  9. LANSOPRAZOLE [Concomitant]
  10. FOLIC ACID [Concomitant]

REACTIONS (1)
  - INJECTION SITE STINGING [None]
